FAERS Safety Report 19799108 (Version 1)
Quarter: 2021Q3

REPORT INFORMATION
  Report Type: Spontaneous
  Country: US (occurrence: US)
  Receive Date: 20210907
  Receipt Date: 20210907
  Transmission Date: 20211014
  Serious: No
  Sender: FDA-Public Use
  Company Number: US-BAYER-2021-199097

PATIENT
  Age: 63 Year
  Sex: Female

DRUGS (3)
  1. CLARITIN [Suspect]
     Active Substance: LORATADINE
     Indication: NASAL CONGESTION
     Dosage: 1 DF
     Dates: start: 20210719
  2. CLARITIN [Suspect]
     Active Substance: LORATADINE
     Indication: HEADACHE
  3. CLARITIN [Suspect]
     Active Substance: LORATADINE
     Indication: FACIAL PAIN

REACTIONS (1)
  - Drug ineffective for unapproved indication [Unknown]

NARRATIVE: CASE EVENT DATE: 20210719
